FAERS Safety Report 7649469-X (Version None)
Quarter: 2011Q3

REPORT INFORMATION
  Report Type: 
  Country: None (occurrence: None)
  Receive Date: 20110802
  Receipt Date: 20110720
  Transmission Date: 20111222
  Serious: Yes (Hospitalization, Other)
  Sender: FDA-Public Use
  Company Number: JP-UCBSA-006831

PATIENT
  Sex: Female

DRUGS (19)
  1. CERTOLIZUMAB PEGOL [Suspect]
     Route: 058
     Dates: start: 20100202, end: 20110118
  2. KETOPROFEN [Concomitant]
     Dosage: ADEQUATE DOSE
     Dates: start: 20090529
  3. DICLOFENAC SODIUM [Concomitant]
     Dates: start: 20090203
  4. TRIAZOLAM [Concomitant]
     Indication: INSOMNIA
     Dosage: 0.25 MG IN CASE OF INSOMNIA
  5. ELCATONIN [Concomitant]
     Dates: start: 20100202, end: 20100317
  6. LOXOPROFEN SODIUM [Concomitant]
     Dates: start: 20100708
  7. PREDNISOLONE [Concomitant]
     Dates: start: 20090503
  8. PIRMENOL HYDROCHLORIDE [Concomitant]
  9. CERTOLIZUMAB PEGOL [Suspect]
     Route: 058
     Dates: start: 20110202, end: 20110301
  10. PREDNISOLONE [Concomitant]
  11. ALFACALCIDOL [Concomitant]
  12. CELECOXIB [Concomitant]
     Dates: start: 20090417, end: 20100202
  13. ALENDRONATE SODIUM [Concomitant]
  14. POLAPREZINC [Concomitant]
  15. POLAPREZINC [Concomitant]
  16. TIZANIDINE HYDROCHLORIDE [Concomitant]
  17. LOXOPROFEN SODIUM [Concomitant]
     Dates: start: 20100203
  18. CERTOLIZUMAB PEGOL [Suspect]
     Indication: RHEUMATOID ARTHRITIS
     Route: 058
  19. CERTOLIZUMAB PEGOL [Suspect]
     Route: 058

REACTIONS (2)
  - SPINAL COMPRESSION FRACTURE [None]
  - LYMPHOMA [None]
